FAERS Safety Report 6310720-X (Version None)
Quarter: 2009Q3

REPORT INFORMATION
  Report Type: 
  Country: None (occurrence: None)
  Receive Date: 20090811
  Receipt Date: 20090729
  Transmission Date: 20100115
  Serious: Yes (Hospitalization, Other)
  Sender: FDA-Public Use
  Company Number: 230459K09BRA

PATIENT
  Age: 57 Year
  Sex: Female

DRUGS (6)
  1. REBIF [Suspect]
     Indication: RELAPSING-REMITTING MULTIPLE SCLEROSIS
     Dosage: 44 MCG, 2 IN 1 WEEKS
     Dates: start: 20030103, end: 20090201
  2. REBIF [Suspect]
     Indication: RELAPSING-REMITTING MULTIPLE SCLEROSIS
     Dosage: 44 MCG, 2 IN 1 WEEKS
     Dates: start: 20090226, end: 20090301
  3. LEVOTHYROXINE SODIUM [Concomitant]
  4. SOTALOL HCL [Concomitant]
  5. URBANYL (CLOBAZAM) [Concomitant]
  6. PARACETAMOL (PARACETAMOL) [Concomitant]

REACTIONS (2)
  - BREAST CANCER [None]
  - PRURITUS [None]
